FAERS Safety Report 15424409 (Version 4)
Quarter: 2019Q4

REPORT INFORMATION
  Report Type: Report from Study
  Country: IN (occurrence: IN)
  Receive Date: 20180925
  Receipt Date: 20191106
  Transmission Date: 20200122
  Serious: Yes (Hospitalization)
  Sender: FDA-Public Use
  Company Number: PHHY2018IN105620

PATIENT
  Sex: Male

DRUGS (8)
  1. SCAPHO [Suspect]
     Active Substance: SECUKINUMAB
     Dosage: UNK
     Route: 065
     Dates: start: 20190216
  2. SCAPHO [Suspect]
     Active Substance: SECUKINUMAB
     Dosage: 150 MG, QMO
     Route: 058
     Dates: start: 20180919
  3. SCAPHO [Suspect]
     Active Substance: SECUKINUMAB
     Dosage: 150 MG, ONCE IN 8 WEEKS
     Route: 058
     Dates: start: 20190721
  4. SCAPHO [Suspect]
     Active Substance: SECUKINUMAB
     Dosage: UNK
     Route: 065
     Dates: start: 201904
  5. SCAPHO [Suspect]
     Active Substance: SECUKINUMAB
     Dosage: 150 MG, ONCE IN 8 WEEKS
     Route: 058
     Dates: start: 20191029
  6. SCAPHO [Suspect]
     Active Substance: SECUKINUMAB
     Indication: ANKYLOSING SPONDYLITIS
     Dosage: 150 MG, QMO
     Route: 058
     Dates: start: 201807
  7. SCAPHO [Suspect]
     Active Substance: SECUKINUMAB
     Dosage: UNK
     Route: 065
     Dates: start: 20181201
  8. SCAPHO [Suspect]
     Active Substance: SECUKINUMAB
     Dosage: 150 MG, QMO
     Route: 058
     Dates: start: 20180811

REACTIONS (5)
  - Pyrexia [Unknown]
  - Product prescribing error [Unknown]
  - Expired product administered [Unknown]
  - Malaise [Recovering/Resolving]
  - Viral infection [Unknown]
